FAERS Safety Report 14289023 (Version 10)
Quarter: 2024Q2

REPORT INFORMATION
  Report Type: Report from Study
  Country: GB (occurrence: GB)
  Receive Date: 20171214
  Receipt Date: 20240415
  Transmission Date: 20240716
  Serious: Yes (Hospitalization, Other)
  Sender: FDA-Public Use
  Company Number: GB-CELGENE-GBR-20171102947

PATIENT
  Age: 72 Year
  Sex: Female
  Weight: 57.5 kg

DRUGS (12)
  1. DEXAMETHASONE [Suspect]
     Active Substance: DEXAMETHASONE
     Indication: Plasma cell myeloma
     Dosage: 20 MILLIGRAM, DURATION: 50 DAYS
     Route: 048
     Dates: start: 20170922, end: 20171111
  2. DEXAMETHASONE [Suspect]
     Active Substance: DEXAMETHASONE
     Indication: Plasma cell myeloma
     Dosage: 20 MILLIGRAM, DURATION: 21 DAYS
     Route: 048
     Dates: start: 20170922, end: 20171013
  3. METOCLOPRAMIDE [Concomitant]
     Active Substance: METOCLOPRAMIDE
     Indication: Nausea
     Route: 048
     Dates: start: 201711
  4. CLOPIDOGREL [Concomitant]
     Active Substance: CLOPIDOGREL BISULFATE
     Indication: Thrombosis prophylaxis
     Dosage: 75 MILLIGRAM
     Route: 048
     Dates: start: 201402
  5. CIPROFLOXACIN [Concomitant]
     Active Substance: CIPROFLOXACIN
     Indication: Infection
     Dosage: 1500 MILLIGRAM, DURATION: 6 DAYS
     Dates: start: 20171108, end: 20171114
  6. TINZAPARIN [Concomitant]
     Active Substance: TINZAPARIN
     Indication: Thrombosis prophylaxis
     Dosage: 4500 IU (INTERNATIONAL UNIT)
     Route: 058
     Dates: start: 20160630
  7. CYCLIZINE [Concomitant]
     Active Substance: CYCLIZINE
     Indication: Nausea
     Dosage: 100 MILLIGRAM
     Route: 048
     Dates: start: 20170922
  8. ACYCLOVIR [Concomitant]
     Active Substance: ACYCLOVIR
     Indication: Prophylaxis
     Dosage: 400 MILLIGRAM
     Route: 048
     Dates: start: 20160229
  9. FLUCONAZOLE [Concomitant]
     Active Substance: FLUCONAZOLE
     Indication: Oral candidiasis
     Dosage: 200 MILLIGRAM
     Route: 048
     Dates: start: 20171106, end: 20171112
  10. POMALIDOMIDE [Suspect]
     Active Substance: POMALIDOMIDE
     Indication: Plasma cell myeloma
     Dosage: 4 MILLIGRAM, DURATION: 48 DAYS
     Route: 048
     Dates: start: 20170922, end: 20171109
  11. POMALIDOMIDE [Suspect]
     Active Substance: POMALIDOMIDE
     Indication: Plasma cell myeloma
     Dosage: 4 MILLIGRAM, DURATION: 20 DAYS
     Route: 048
     Dates: start: 20180104, end: 20180124
  12. APIXABAN [Concomitant]
     Active Substance: APIXABAN
     Indication: Thrombosis prophylaxis
     Route: 048
     Dates: start: 20171220

REACTIONS (8)
  - Fall [Not Recovered/Not Resolved]
  - Febrile neutropenia [Recovered/Resolved]
  - Dizziness [Not Recovered/Not Resolved]
  - Anaemia [Recovered/Resolved]
  - Nausea [Not Recovered/Not Resolved]
  - Neutropenia [Recovered/Resolved]
  - Lymphopenia [Recovered/Resolved]
  - Leukopenia [Recovered/Resolved]

NARRATIVE: CASE EVENT DATE: 20171012
